FAERS Safety Report 24725777 (Version 1)
Quarter: 2024Q4

REPORT INFORMATION
  Report Type: Spontaneous
  Country: US (occurrence: US)
  Receive Date: 20241212
  Receipt Date: 20241212
  Transmission Date: 20250114
  Serious: Yes (Other)
  Sender: OCTAPHARMA
  Company Number: US-OCTA-2024000155

PATIENT
  Age: 61 Year
  Sex: Male

DRUGS (6)
  1. OCTAGAM IMMUNE GLOBULIN (HUMAN) [Suspect]
     Active Substance: HUMAN IMMUNOGLOBULIN G
     Indication: Product used for unknown indication
     Route: 042
     Dates: start: 20240711
  2. ALLOPURINOL [Concomitant]
     Active Substance: ALLOPURINOL
     Indication: Product used for unknown indication
  3. OBINUTUZUMAB [Concomitant]
     Active Substance: OBINUTUZUMAB
     Indication: Product used for unknown indication
  4. VENCLEXTA [Concomitant]
     Active Substance: VENETOCLAX
     Indication: Product used for unknown indication
  5. EVUSHELD [Concomitant]
     Active Substance: CILGAVIMAB\TIXAGEVIMAB
     Indication: Product used for unknown indication
  6. OXYGEN [Concomitant]
     Active Substance: OXYGEN
     Indication: Product used for unknown indication

REACTIONS (8)
  - Hypogammaglobulinaemia [Unknown]
  - Rash [Recovered/Resolved]
  - Nausea [Unknown]
  - Diarrhoea [Unknown]
  - Pruritus [Recovering/Resolving]
  - Gout [Unknown]
  - Lymphocytosis [Recovered/Resolved]
  - Drug eruption [Unknown]

NARRATIVE: CASE EVENT DATE: 20240101
